FAERS Safety Report 4581622-4 (Version None)
Quarter: 2005Q1

REPORT INFORMATION
  Report Type: 
  Country: None (occurrence: None)
  Receive Date: 20050214
  Receipt Date: 20041203
  Transmission Date: 20050727
  Serious: Yes (Other)
  Sender: FDA-Public Use
  Company Number: US-GLAXOSMITHKLINE-A0536210A

PATIENT
  Age: 26 Year
  Sex: Female

DRUGS (3)
  1. LAMICTAL [Suspect]
     Indication: EPILEPSY
     Route: 048
     Dates: start: 20040927, end: 20041120
  2. PROVIGIL [Concomitant]
     Dosage: 100MG PER DAY
     Route: 048
     Dates: start: 20040927, end: 20041123
  3. KEPPRA [Concomitant]
     Dates: start: 20031118

REACTIONS (1)
  - RASH [None]
